FAERS Safety Report 10383498 (Version 1)
Quarter: 2014Q3

REPORT INFORMATION
  Report Type: Spontaneous
  Country: US (occurrence: US)
  Receive Date: 20140814
  Receipt Date: 20140814
  Transmission Date: 20150326
  Serious: No
  Sender: FDA-Public Use
  Company Number: US-B.I. PHARMACEUTICALS,INC./RIDGEFIELD-2014-BI-37073BP

PATIENT
  Age: 65 Year
  Sex: Female
  Weight: 105 kg

DRUGS (1)
  1. DULCOLAX STOOL SOFTENER [Suspect]
     Active Substance: DOCUSATE SODIUM
     Indication: FAECES HARD
     Dosage: 100 MG
     Route: 048
     Dates: start: 201311

REACTIONS (1)
  - Intentional product misuse [Not Recovered/Not Resolved]

NARRATIVE: CASE EVENT DATE: 201311
